FAERS Safety Report 20833383 (Version 1)
Quarter: 2022Q2

REPORT INFORMATION
  Report Type: 
  Country: None (occurrence: None)
  Receive Date: 20220516
  Receipt Date: 20220516
  Transmission Date: 20220721
  Serious: No
  Sender: FDA-Public Use
  Company Number: CN-ROCHE-2941755

PATIENT
  Age: 46 Year
  Weight: 78.6 kg

DRUGS (15)
  1. BEVACIZUMAB [Suspect]
     Active Substance: BEVACIZUMAB
     Dosage: MOST RECENT DOSE OF BEVACIZUMAB PRIOR TO SAE ONSET: 15/OCT/2021
     Dates: start: 20210924
  2. CARBOPLATIN [Suspect]
     Active Substance: CARBOPLATIN
     Dosage: MOST RECENT DOSE OF CARBOPLATIN PRIOR TO SAE ONSET: 15/OCT/2021
     Dates: start: 20210924
  3. ETOPOSIDE [Suspect]
     Active Substance: ETOPOSIDE
     Dosage: MOST RECENT DOSE OF ETOPOSIDE PRIOR TO SAE ONSET: 17/OCT/2021
     Dates: start: 20210924
  4. ATEZOLIZUMAB [Suspect]
     Active Substance: ATEZOLIZUMAB
     Dosage: MOST RECENT DOSE OF ATEZOLIZUMAB PRIOR TO SAE ONSET: 15/OCT/2021
     Dates: start: 20210924
  5. AMBROXOL HYDROCHLORIDE [Concomitant]
     Active Substance: AMBROXOL HYDROCHLORIDE
     Dates: start: 20210921, end: 20210927
  6. LACTULOSE [Concomitant]
     Active Substance: LACTULOSE
     Dates: start: 20210924, end: 20210927
  7. LACTULOSE [Concomitant]
     Active Substance: LACTULOSE
     Dates: start: 20211015, end: 20211017
  8. APREPITANT [Concomitant]
     Active Substance: APREPITANT
     Dates: start: 20210924, end: 20210927
  9. APREPITANT [Concomitant]
     Active Substance: APREPITANT
     Dates: start: 20211015
  10. LANSOPRAZOLE [Concomitant]
     Active Substance: LANSOPRAZOLE
     Dates: start: 20210924, end: 20210926
  11. LANSOPRAZOLE [Concomitant]
     Active Substance: LANSOPRAZOLE
     Dates: start: 20211015, end: 20211017
  12. MAGNESIUM ISOGLYCYRRHIZINATE [Concomitant]
     Active Substance: MAGNESIUM ISOGLYCYRRHIZINATE
     Dates: start: 20210924, end: 20210926
  13. MAGNESIUM ISOGLYCYRRHIZINATE [Concomitant]
     Active Substance: MAGNESIUM ISOGLYCYRRHIZINATE
     Dates: start: 20211015, end: 20211017
  14. PALONOSETRON HYDROCHLORIDE [Concomitant]
     Active Substance: PALONOSETRON HYDROCHLORIDE
     Dates: start: 20210924, end: 20210926
  15. PALONOSETRON HYDROCHLORIDE [Concomitant]
     Active Substance: PALONOSETRON HYDROCHLORIDE
     Dates: start: 20211015, end: 20211017

REACTIONS (2)
  - Visual field defect [None]
  - Vision blurred [None]

NARRATIVE: CASE EVENT DATE: 20211017
